FAERS Safety Report 7144861-4 (Version None)
Quarter: 2010Q4

REPORT INFORMATION
  Report Type: 
  Country: None (occurrence: None)
  Receive Date: 20101123
  Receipt Date: 20101116
  Transmission Date: 20110411
  Serious: Yes (Other)
  Sender: FDA-Public Use
  Company Number: 2010MA004593

PATIENT
  Age: 62 Year
  Sex: Male

DRUGS (1)
  1. PHENYTOIN [Suspect]
     Indication: EPILEPSY
     Dosage: 50 MG, QD, PO
     Route: 048

REACTIONS (25)
  - BIOPSY LUNG ABNORMAL [None]
  - BRONCHOALVEOLAR LAVAGE ABNORMAL [None]
  - CARDIOMEGALY [None]
  - COMPUTERISED TOMOGRAM THORAX ABNORMAL [None]
  - DYSPNOEA [None]
  - DYSPNOEA EXERTIONAL [None]
  - EJECTION FRACTION DECREASED [None]
  - EOSINOPHILIA [None]
  - HEART RATE INCREASED [None]
  - LUNG DISORDER [None]
  - LUNG INFILTRATION [None]
  - LYMPHOCYTE STIMULATION TEST POSITIVE [None]
  - MITRAL VALVE INCOMPETENCE [None]
  - OXYGEN SATURATION DECREASED [None]
  - PLEURAL FIBROSIS [None]
  - PO2 DECREASED [None]
  - PRODUCTIVE COUGH [None]
  - PULMONARY FUNCTION TEST ABNORMAL [None]
  - PYREXIA [None]
  - RALES [None]
  - RED BLOOD CELL SEDIMENTATION RATE INCREASED [None]
  - RESPIRATORY RATE INCREASED [None]
  - SPUTUM PURULENT [None]
  - TRICUSPID VALVE INCOMPETENCE [None]
  - WHITE BLOOD CELL COUNT INCREASED [None]
